FAERS Safety Report 4837290-7 (Version None)
Quarter: 2005Q4

REPORT INFORMATION
  Report Type: 
  Country: None (occurrence: None)
  Receive Date: 20051122
  Receipt Date: 20051108
  Transmission Date: 20060501
  Serious: Yes (Hospitalization)
  Sender: FDA-Public Use
  Company Number: 02100-JPN-05-0533

PATIENT
  Age: 85 Year
  Sex: Female

DRUGS (5)
  1. CILOSTAZOL [Suspect]
     Indication: ARTERIOSCLEROSIS OBLITERANS
     Dosage: 100 MG, ORAL
     Route: 048
     Dates: start: 20050108, end: 20050326
  2. CILOSTAZOL [Suspect]
     Indication: ARTERIOSCLEROSIS OBLITERANS
     Dosage: 100 MG, ORAL
     Route: 048
     Dates: start: 20050428, end: 20050913
  3. TELMISARTAN [Concomitant]
  4. FUROSEMIDE [Concomitant]
  5. DICLOFENAC SODIUM [Concomitant]

REACTIONS (5)
  - CARDIAC FAILURE [None]
  - CORONARY ARTERY STENOSIS [None]
  - MYOCARDIAL ISCHAEMIA [None]
  - NASOPHARYNGITIS [None]
  - PNEUMONIA [None]
